FAERS Safety Report 7784246-0 (Version None)
Quarter: 2011Q3

REPORT INFORMATION
  Report Type: 
  Country: None (occurrence: None)
  Receive Date: 20110926
  Receipt Date: 20110915
  Transmission Date: 20111222
  Serious: Yes (Other)
  Sender: FDA-Public Use
  Company Number: LEO-2011-00540

PATIENT
  Age: 66 Year
  Sex: Female
  Weight: 60 kg

DRUGS (1)
  1. INNOHEP [Suspect]
     Indication: THROMBOPHLEBITIS SUPERFICIAL
     Dosage: 10000 IU (0.5 ML, 1 IN 1 D), SUBCUTANEOUS
     Route: 058
     Dates: start: 20110609, end: 20110611

REACTIONS (2)
  - HEPATITIS [None]
  - ASTHENIA [None]
